FAERS Safety Report 14629202 (Version 4)
Quarter: 2024Q2

REPORT INFORMATION
  Report Type: Spontaneous
  Country: IT (occurrence: IT)
  Receive Date: 20180313
  Receipt Date: 20240517
  Transmission Date: 20240715
  Serious: Yes (Other)
  Sender: FDA-Public Use
  Company Number: None

PATIENT
  Age: 33 Year
  Sex: Male
  Weight: 100 kg

DRUGS (14)
  1. QUETIAPINE [Suspect]
     Active Substance: QUETIAPINE
     Indication: Product used for unknown indication
     Dosage: STRENGTH: 200 MG?1600 MILLIGRAM
     Route: 048
     Dates: start: 20171112, end: 20171112
  2. LORAZEPAM [Suspect]
     Active Substance: LORAZEPAM
     Indication: Product used for unknown indication
     Dosage: STRENGTH: 2.5 MG?25 MG
     Route: 048
     Dates: start: 20171112, end: 20171112
  3. RISPERIDONE [Suspect]
     Active Substance: RISPERIDONE
     Indication: Product used for unknown indication
     Dosage: 6 MILLIGRAM
     Route: 048
     Dates: start: 20171112, end: 20171112
  4. LANSOPRAZOLE [Suspect]
     Active Substance: LANSOPRAZOLE
     Indication: Product used for unknown indication
     Dosage: STRENGTH: 15 MG?60 MILLIGRAM
     Route: 048
     Dates: start: 20171112, end: 20171112
  5. ZUCLOPENTHIXOL HYDROCHLORIDE [Suspect]
     Active Substance: ZUCLOPENTHIXOL HYDROCHLORIDE
     Indication: Product used for unknown indication
     Dosage: STRENGTH: 10 MG?20 MG, UNK
     Route: 048
     Dates: start: 20171112, end: 20171112
  6. LORMETAZEPAM [Suspect]
     Active Substance: LORMETAZEPAM
     Indication: Product used for unknown indication
     Dosage: STRENGTH: 2 MG
     Route: 048
     Dates: start: 20171112, end: 20171112
  7. AKINETON [Suspect]
     Active Substance: BIPERIDEN HYDROCHLORIDE
     Indication: Product used for unknown indication
     Dosage: STRENGTH: 4 MG?40 MG, UNK
     Route: 048
     Dates: start: 20171112, end: 20171112
  8. HALDOL [Suspect]
     Active Substance: HALOPERIDOL
     Indication: Product used for unknown indication
     Dosage: STRENGTH: 1 MG,4 MG, UNK
     Route: 048
     Dates: start: 20171112, end: 20171112
  9. LANSOPRAZOLE [Suspect]
     Active Substance: LANSOPRAZOLE
     Indication: Product used for unknown indication
     Dosage: 2 MILLIGRAM, QD
     Route: 048
     Dates: start: 20171112, end: 20171112
  10. LANSOPRAZOLE [Suspect]
     Active Substance: LANSOPRAZOLE
     Indication: Product used for unknown indication
     Dosage: 2.5 MILLIGRAM, QD
     Route: 048
     Dates: start: 20171112, end: 20171112
  11. LANSOPRAZOLE [Suspect]
     Active Substance: LANSOPRAZOLE
     Indication: Product used for unknown indication
     Dosage: 25 MILLIGRAM
     Route: 048
     Dates: start: 20171112, end: 20171112
  12. LANSOPRAZOLE [Suspect]
     Active Substance: LANSOPRAZOLE
     Indication: Product used for unknown indication
     Dosage: 12 MILLIGRAM
     Route: 048
     Dates: start: 20171112, end: 20171112
  13. LANSOPRAZOLE [Suspect]
     Active Substance: LANSOPRAZOLE
     Indication: Product used for unknown indication
     Dosage: 20 MILLIGRAM, QD
     Route: 048
     Dates: start: 20171112, end: 20171112
  14. LANSOPRAZOLE [Suspect]
     Active Substance: LANSOPRAZOLE
     Indication: Product used for unknown indication
     Dosage: 15 MILLIGRAM, QD
     Route: 048
     Dates: start: 20171112, end: 20171112

REACTIONS (4)
  - Intentional product misuse [Unknown]
  - Intentional self-injury [Unknown]
  - Self-injurious ideation [Unknown]
  - Self-destructive behaviour [Unknown]

NARRATIVE: CASE EVENT DATE: 20171112
